FAERS Safety Report 8152485-5 (Version None)
Quarter: 2012Q1

REPORT INFORMATION
  Report Type: 
  Country: None (occurrence: None)
  Receive Date: 20120221
  Receipt Date: 20120209
  Transmission Date: 20120608
  Serious: Yes (Life-Threatening, Other)
  Sender: FDA-Public Use
  Company Number: FI-JNJFOC-20120205508

PATIENT
  Sex: Female

DRUGS (3)
  1. REMICADE [Suspect]
     Route: 042
     Dates: start: 20120201, end: 20120201
  2. ARAVA [Concomitant]
     Indication: JUVENILE ARTHRITIS
     Dosage: 1 TABLET 3 TIMES PER WEEK
     Route: 048
     Dates: start: 20100611
  3. REMICADE [Suspect]
     Indication: JUVENILE ARTHRITIS
     Route: 042
     Dates: start: 20110110

REACTIONS (5)
  - DYSPNOEA [None]
  - SENSATION OF FOREIGN BODY [None]
  - MALAISE [None]
  - INFUSION RELATED REACTION [None]
  - PALLOR [None]
